FAERS Safety Report 6236435-4 (Version None)
Quarter: 2009Q2

REPORT INFORMATION
  Report Type: 
  Country: None (occurrence: None)
  Receive Date: 20090619
  Receipt Date: 20090611
  Transmission Date: 20091009
  Serious: Yes (Other)
  Sender: FDA-Public Use
  Company Number: US-ASTRAZENECA-2009UW03069

PATIENT
  Sex: Female
  Weight: 77.6 kg

DRUGS (3)
  1. SEROQUEL [Suspect]
     Indication: DEPRESSION
     Dosage: 25 TO 100 MG
     Route: 048
     Dates: start: 19970101, end: 20070901
  2. ABILIFY [Concomitant]
  3. THORAZINE [Concomitant]

REACTIONS (6)
  - ASTHMA [None]
  - DIABETES MELLITUS [None]
  - DIABETIC COMPLICATION [None]
  - DIABETIC ULCER [None]
  - HYPERTENSION [None]
  - HYPOGLYCAEMIA [None]
